FAERS Safety Report 18498147 (Version 2)
Quarter: 2021Q1

REPORT INFORMATION
  Report Type: Spontaneous
  Country: US (occurrence: US)
  Receive Date: 20201112
  Receipt Date: 20210211
  Transmission Date: 20210419
  Serious: No
  Sender: FDA-Public Use
  Company Number: US-RIGEL PHARMACEUTICALS, INC.-2020FOS000484

PATIENT
  Sex: Male

DRUGS (7)
  1. TAVALISSE [Suspect]
     Active Substance: FOSTAMATINIB
     Dosage: 100 MG, BID
     Dates: start: 20200817, end: 20200917
  2. DOPTELET [Concomitant]
     Active Substance: AVATROMBOPAG MALEATE
     Indication: PRODUCT USED FOR UNKNOWN INDICATION
     Dosage: 40 MG, QD
  3. TAVALISSE [Suspect]
     Active Substance: FOSTAMATINIB
     Indication: IMMUNE THROMBOCYTOPENIA
     Dosage: 150 MG, BID
     Route: 048
     Dates: start: 20200918, end: 202010
  4. ACYCLOVIR [ACICLOVIR] [Concomitant]
     Active Substance: ACYCLOVIR
     Indication: PRODUCT USED FOR UNKNOWN INDICATION
     Dosage: 800 MG, QD
  5. PREDNISONE. [Concomitant]
     Active Substance: PREDNISONE
     Indication: PRODUCT USED FOR UNKNOWN INDICATION
     Dosage: 20 MG, QD
  6. LEVOTHYROXINE. [Concomitant]
     Active Substance: LEVOTHYROXINE
     Indication: PRODUCT USED FOR UNKNOWN INDICATION
     Dosage: 50 MICROGRAM, QD
  7. LISINOPRIL. [Concomitant]
     Active Substance: LISINOPRIL
     Indication: PRODUCT USED FOR UNKNOWN INDICATION
     Dosage: 20 MG, QD

REACTIONS (2)
  - Abdominal discomfort [Unknown]
  - Fatigue [Unknown]

NARRATIVE: CASE EVENT DATE: 2020
